FAERS Safety Report 21490437 (Version 2)
Quarter: 2025Q2

REPORT INFORMATION
  Report Type: Spontaneous
  Country: US (occurrence: US)
  Receive Date: 20221021
  Receipt Date: 20250528
  Transmission Date: 20250717
  Serious: Yes (Other)
  Sender: AUROBINDO
  Company Number: US-AUROBINDO-AUR-APL-2022-043488

PATIENT
  Age: 87 Year
  Sex: Male

DRUGS (7)
  1. CIPROFLOXACIN [Suspect]
     Active Substance: CIPROFLOXACIN
     Indication: Scleritis
     Dosage: 500 MILLIGRAM, TWO TIMES A DAY
     Route: 048
  2. MOXIFLOXACIN [Suspect]
     Active Substance: MOXIFLOXACIN
     Indication: Pseudomonas infection
     Dosage: UNK, EVERY HOUR
     Route: 061
  3. TRIAMCINOLONE [Suspect]
     Active Substance: TRIAMCINOLONE
     Indication: Pseudomonas infection
     Route: 065
  4. CYCLOPENTOLATE [Suspect]
     Active Substance: CYCLOPENTOLATE
     Indication: Pseudomonas infection
     Dosage: UNK, TWO TIMES A DAY
     Route: 065
  5. CEFTAZIDIME [Suspect]
     Active Substance: CEFTAZIDIME
     Indication: Pseudomonas infection
     Route: 065
  6. LOTEPREDNOL [Suspect]
     Active Substance: LOTEPREDNOL
     Indication: Pseudomonas infection
     Dosage: UNK, FOUR TIMES/DAY
     Route: 061
  7. TOBRAMYCIN [Suspect]
     Active Substance: TOBRAMYCIN
     Indication: Pseudomonas infection
     Dosage: 15MG/ML, EVERY HOUR
     Route: 061

REACTIONS (5)
  - Infective corneal ulcer [Unknown]
  - Necrotising scleritis [Recovered/Resolved]
  - Scleromalacia [Not Recovered/Not Resolved]
  - Toxicity to various agents [Unknown]
  - Corneal scar [Unknown]
